FAERS Safety Report 5489412-5 (Version None)
Quarter: 2007Q4

REPORT INFORMATION
  Report Type: 
  Country: None (occurrence: None)
  Receive Date: 20071018
  Receipt Date: 20071012
  Transmission Date: 20080405
  Serious: Yes (Other)
  Sender: FDA-Public Use
  Company Number: CA-ASTRAZENECA-2007UW23931

PATIENT
  Age: 32 Year
  Sex: Female

DRUGS (3)
  1. SEROQUEL [Suspect]
     Route: 048
  2. DESYREL [Concomitant]
  3. RATIO-PAROXETINE [Concomitant]

REACTIONS (6)
  - ASTHENIA [None]
  - DEHYDRATION [None]
  - DIZZINESS POSTURAL [None]
  - DRY THROAT [None]
  - FATIGUE [None]
  - MICTURITION URGENCY [None]
